FAERS Safety Report 9286058 (Version 7)
Quarter: 2014Q1

REPORT INFORMATION
  Report Type: Spontaneous
  Country: US (occurrence: None)
  Receive Date: 20130507
  Receipt Date: 20140221
  Transmission Date: 20141002
  Serious: Yes (Hospitalization, Other)
  Sender: FDA-Public Use
  Company Number: 2013SGN00237

PATIENT
  Age: 42 Year
  Sex: Male
  Weight: 72.7 kg

DRUGS (13)
  1. BRENTUXIMAB VEDOTIN [Suspect]
     Indication: NON-HODGKIN^S LYMPHOMA
     Route: 042
     Dates: start: 20130417, end: 20130417
  2. TORSEMIDE (TORSEMIDE) [Concomitant]
  3. COREG (CARVEDILOL) [Concomitant]
  4. ASPIRIN [Concomitant]
  5. AMBIEN (ZOLPIDEM TARTRATE) [Concomitant]
  6. COLACE [Concomitant]
  7. NORCO (HYDROCODONE BITARTRATE, PARACETAMOL) [Concomitant]
  8. PROTONIX (PANTOPRAZOLE) [Concomitant]
  9. PERCOCET [Concomitant]
  10. PRANDIN [Concomitant]
  11. BACTRIM [Concomitant]
  12. VALTREX (VALACICLOVIR HYDROCHLORIDE) [Concomitant]
  13. ALLOPURINOL (ALLOPURINOL) [Concomitant]

REACTIONS (15)
  - Respiratory failure [None]
  - Renal failure acute [None]
  - Mental status changes [None]
  - Pleural effusion [None]
  - Blood lactate dehydrogenase increased [None]
  - Atrial fibrillation [None]
  - Tachycardia [None]
  - Pneumonia [None]
  - Bundle branch block right [None]
  - Hypovolaemia [None]
  - Fatigue [None]
  - Scrotal oedema [None]
  - Apnoea [None]
  - Blood pressure decreased [None]
  - Atrial flutter [None]
